FAERS Safety Report 7207831-3 (Version None)
Quarter: 2011Q1

REPORT INFORMATION
  Report Type: 
  Country: None (occurrence: None)
  Receive Date: 20110104
  Receipt Date: 20101217
  Transmission Date: 20110831
  Serious: No
  Sender: FDA-Public Use
  Company Number: 2010BI001770

PATIENT
  Sex: Male

DRUGS (1)
  1. TYSABRI [Suspect]
     Indication: MULTIPLE SCLEROSIS
     Route: 042
     Dates: start: 20091228

REACTIONS (15)
  - MEMORY IMPAIRMENT [None]
  - HEADACHE [None]
  - DIZZINESS [None]
  - ASTHENIA [None]
  - VOMITING [None]
  - TINNITUS [None]
  - MULTIPLE SCLEROSIS RELAPSE [None]
  - NAUSEA [None]
  - PAIN [None]
  - HYPERTENSION [None]
  - BALANCE DISORDER [None]
  - PARAESTHESIA [None]
  - HYPOAESTHESIA [None]
  - PAIN IN EXTREMITY [None]
  - MULTIPLE SCLEROSIS [None]
